FAERS Safety Report 17823191 (Version 4)
Quarter: 2022Q3

REPORT INFORMATION
  Report Type: Report from Study
  Country: JP (occurrence: JP)
  Receive Date: 20200526
  Receipt Date: 20220713
  Transmission Date: 20221027
  Serious: Yes (Hospitalization, Other)
  Sender: FDA-Public Use
  Company Number: JP-GLAXOSMITHKLINE-JP2020JPN085478

PATIENT

DRUGS (29)
  1. MEPOLIZUMAB [Suspect]
     Active Substance: MEPOLIZUMAB
     Indication: Eosinophilic granulomatosis with polyangiitis
     Dosage: 300 MG
     Route: 058
     Dates: start: 20190711, end: 20190711
  2. MEPOLIZUMAB [Suspect]
     Active Substance: MEPOLIZUMAB
     Dosage: 300 MG
     Route: 058
     Dates: start: 20190808, end: 20190808
  3. MEPOLIZUMAB [Suspect]
     Active Substance: MEPOLIZUMAB
     Dosage: 300 MG
     Route: 058
     Dates: start: 20190905, end: 20190905
  4. MEPOLIZUMAB [Suspect]
     Active Substance: MEPOLIZUMAB
     Dosage: 300 MG
     Route: 058
     Dates: start: 20191003, end: 20191003
  5. MEPOLIZUMAB [Suspect]
     Active Substance: MEPOLIZUMAB
     Dosage: 300 MG
     Route: 058
     Dates: start: 20191031, end: 20191031
  6. MEPOLIZUMAB [Suspect]
     Active Substance: MEPOLIZUMAB
     Dosage: 300 MG
     Route: 058
     Dates: start: 20191128, end: 20191128
  7. MEPOLIZUMAB [Suspect]
     Active Substance: MEPOLIZUMAB
     Dosage: 300 MG
     Route: 058
     Dates: start: 20191226, end: 20191226
  8. MEPOLIZUMAB [Suspect]
     Active Substance: MEPOLIZUMAB
     Dosage: 300 MG
     Route: 058
     Dates: start: 20200123, end: 20200123
  9. MEPOLIZUMAB [Suspect]
     Active Substance: MEPOLIZUMAB
     Dosage: 300 MG
     Route: 058
     Dates: start: 20200220, end: 20200220
  10. MEPOLIZUMAB [Suspect]
     Active Substance: MEPOLIZUMAB
     Dosage: 300 MG
     Route: 058
     Dates: start: 20200323, end: 20200323
  11. MEPOLIZUMAB [Suspect]
     Active Substance: MEPOLIZUMAB
     Dosage: 300 MG
     Route: 058
     Dates: start: 20200430, end: 20200430
  12. PREDONINE [Suspect]
     Active Substance: PREDNISOLONE
     Indication: Eosinophilic granulomatosis with polyangiitis
     Dosage: 30 MG
     Route: 048
     Dates: start: 20190703, end: 20190801
  13. PREDONINE [Suspect]
     Active Substance: PREDNISOLONE
     Dosage: 25 MG, 1D
     Route: 048
     Dates: start: 20190802, end: 20190822
  14. PREDONINE [Suspect]
     Active Substance: PREDNISOLONE
     Dosage: 20 MG, 1D
     Route: 048
     Dates: start: 20190823, end: 20191003
  15. PREDONINE [Suspect]
     Active Substance: PREDNISOLONE
     Dosage: 18.75 MG, 1D
     Route: 048
     Dates: start: 20191004, end: 20191031
  16. PREDONINE [Suspect]
     Active Substance: PREDNISOLONE
     Dosage: 17.5 MG, 1D
     Route: 048
     Dates: start: 20191101, end: 20191128
  17. PREDONINE [Suspect]
     Active Substance: PREDNISOLONE
     Dosage: 16.25 MG, 1D
     Route: 048
     Dates: start: 20191129, end: 20191226
  18. PREDONINE [Suspect]
     Active Substance: PREDNISOLONE
     Dosage: 15 MG, 1D
     Route: 048
     Dates: start: 20191227, end: 20200123
  19. PREDONINE [Suspect]
     Active Substance: PREDNISOLONE
     Dosage: 13.75 MG, 1D
     Route: 048
     Dates: start: 20200124, end: 20200220
  20. PREDONINE [Suspect]
     Active Substance: PREDNISOLONE
     Dosage: 12.5 MG, 1D
     Route: 048
     Dates: start: 20200221, end: 20200323
  21. PREDONINE [Suspect]
     Active Substance: PREDNISOLONE
     Dosage: 17.5 MG, 1D
     Route: 048
     Dates: start: 20200324, end: 20200430
  22. PREDNISOLONE [Concomitant]
     Active Substance: PREDNISOLONE
     Indication: Eosinophilic granulomatosis with polyangiitis
     Dosage: 17.5 MG, 1D
     Route: 048
     Dates: end: 20190702
  23. BETAMETHASONE SODIUM PHOSPHATE [Concomitant]
     Active Substance: BETAMETHASONE SODIUM PHOSPHATE
     Dosage: ONCE TO 3 TIMES ON LEFT AND RIGHT
     Dates: end: 20200220
  24. FLUOROMETHOLONE OPHTHALMIC SUSPENSION [Concomitant]
     Dosage: ONCE ON LEFT AND RIGHT
     Dates: start: 20200221
  25. DAIPHEN COMBINATION TABLETS [Concomitant]
     Indication: Prophylaxis
     Dosage: UNK
  26. LANSOPRAZOLE-OD TABLETS [Concomitant]
     Indication: Prophylaxis
     Dosage: UNK
  27. AMLODIPINE BESYLATE [Concomitant]
     Active Substance: AMLODIPINE BESYLATE
     Dosage: UNK
  28. ACTONEL TABLETS [Concomitant]
     Dosage: UNK
  29. ZACRAS COMBINATION TABLETS [Concomitant]
     Dosage: UNK

REACTIONS (10)
  - Pyrexia [Recovered/Resolved]
  - Optic neuritis [Recovered/Resolved with Sequelae]
  - Condition aggravated [Recovered/Resolved with Sequelae]
  - Eosinophilic granulomatosis with polyangiitis [Recovering/Resolving]
  - Condition aggravated [Recovering/Resolving]
  - Subcutaneous haematoma [Recovered/Resolved]
  - Visual impairment [Unknown]
  - Epistaxis [Recovered/Resolved]
  - Visual impairment [Recovering/Resolving]
  - Inappropriate schedule of product administration [Unknown]

NARRATIVE: CASE EVENT DATE: 20191226
